FAERS Safety Report 5087578-2 (Version None)
Quarter: 2006Q3

REPORT INFORMATION
  Report Type: 
  Country: None (occurrence: None)
  Receive Date: 20060822
  Receipt Date: 20060822
  Transmission Date: 20061208
  Serious: Yes (Hospitalization)
  Sender: FDA-Public Use
  Company Number: None

PATIENT
  Age: 76 Year
  Sex: Female

DRUGS (13)
  1. SULFAMETHOXAZOLE + TRIMETHOPRIM [Suspect]
     Dosage: ONE TABLET   DAILY   PO
     Route: 048
     Dates: start: 20060403, end: 20060410
  2. PHENYTOIN [Concomitant]
  3. MIRALAX [Concomitant]
  4. LEVOXYL [Concomitant]
  5. FUROSEMIDE [Concomitant]
  6. HYDROCORTISONE [Concomitant]
  7. INSULIN -LANTU + NOVOLOG- [Concomitant]
  8. PAROXETINE HCL [Concomitant]
  9. DIGOXIN [Concomitant]
  10. DILTIAZEM HCL [Concomitant]
  11. ENALAPRIL [Concomitant]
  12. DRISDOL [Concomitant]
  13. FEXOFENADINE [Concomitant]

REACTIONS (6)
  - PAIN [None]
  - PRURITUS [None]
  - RASH GENERALISED [None]
  - RASH MACULAR [None]
  - RASH PAPULAR [None]
  - RASH VESICULAR [None]
